FAERS Safety Report 9319932 (Version 2)
Quarter: 2013Q2

REPORT INFORMATION
  Report Type: Spontaneous
  Country: US (occurrence: US)
  Receive Date: 20130530
  Receipt Date: 20130614
  Transmission Date: 20140414
  Serious: Yes (Hospitalization, Other)
  Sender: FDA-Public Use
  Company Number: US-TARO-2013P1006335

PATIENT
  Age: 74 Year
  Sex: Female
  Weight: 108.86 kg

DRUGS (8)
  1. WARFARIN SODIUM TABLETS USP 5MG [Suspect]
     Route: 048
     Dates: start: 2003
  2. ASPIRIN [Concomitant]
  3. DIGOXIN [Concomitant]
  4. TRAMADOL [Concomitant]
  5. FUROSEMIDE [Concomitant]
  6. CHLOROTHIAZIDE ER [Concomitant]
  7. INSULIN [Concomitant]
  8. LONG-ACTING INSULIN [Concomitant]

REACTIONS (4)
  - Drug effect incomplete [Not Recovered/Not Resolved]
  - Neuropathy peripheral [Unknown]
  - Cardiac failure congestive [Unknown]
  - Food interaction [Not Recovered/Not Resolved]
